FAERS Safety Report 8416372-7 (Version None)
Quarter: 2012Q2

REPORT INFORMATION
  Report Type: 
  Country: None (occurrence: None)
  Receive Date: 20120606
  Receipt Date: 20120531
  Transmission Date: 20120825
  Serious: Yes (Hospitalization)
  Sender: FDA-Public Use
  Company Number: US-ALLERGAN-1207628US

PATIENT
  Age: 79 Year
  Sex: Female

DRUGS (3)
  1. ZOCOR [Concomitant]
     Indication: BLOOD CHOLESTEROL
     Dosage: 80 MG, UNK
  2. SANCTURA XR [Suspect]
     Indication: URINARY INCONTINENCE
     Dosage: 60 MG, UNK
     Route: 048
     Dates: start: 20120109, end: 20120329
  3. LISINOPRIL [Concomitant]
     Indication: HYPERTENSION
     Dosage: UNK

REACTIONS (4)
  - URINARY RETENTION [None]
  - ABDOMINAL PAIN UPPER [None]
  - URINARY INCONTINENCE [None]
  - FAECAL INCONTINENCE [None]
